FAERS Safety Report 6895483 (Version 7)
Quarter: 2013Q4

REPORT INFORMATION
  Report Type: Report from Study
  Country: DE (occurrence: DE)
  Receive Date: 20090108
  Receipt Date: 20131108
  Transmission Date: 20140711
  Serious: Yes (Hospitalization)
  Sender: FDA-Public Use
  Company Number: DE-009507513-2008SP025557

PATIENT
  Age: 4 Year
  Sex: Male
  Weight: 20 kg

DRUGS (40)
  1. POSACONAZOLE [Suspect]
     Indication: PROPHYLAXIS
     Dosage: 120 MG, BID
     Route: 048
     Dates: start: 20081124, end: 20081205
  2. METHOTREXATE [Suspect]
     Indication: ACUTE LYMPHOCYTIC LEUKAEMIA
     Dosage: 3900 MG, QD
     Route: 042
     Dates: start: 20081219, end: 20081219
  3. VINDESINE [Suspect]
     Indication: LEUKAEMIA
     Dosage: 2.3 MG, QD
     Route: 042
     Dates: start: 20081219, end: 20081219
  4. IFOSFAMIDE [Suspect]
     Indication: ACUTE LEUKAEMIA
     Dosage: 620 MG, BID
     Route: 042
     Dates: start: 20081220, end: 20081221
  5. IFOSFAMIDE [Suspect]
     Dosage: 620 MG, QD
     Route: 042
     Dates: start: 20081222, end: 20081222
  6. KEVATRIL [Suspect]
     Indication: PROPHYLAXIS
     Dosage: 1 MG, UNK
     Route: 042
     Dates: start: 20081219, end: 20081225
  7. DEXAMETHASONE [Suspect]
     Indication: ACUTE LYMPHOCYTIC LEUKAEMIA
     Dosage: 5 MG, TID
     Route: 048
     Dates: start: 20081219, end: 20081223
  8. FLUCONAZOLE [Concomitant]
     Indication: ANTIFUNGAL PROPHYLAXIS
     Dates: start: 20081118, end: 20081128
  9. COTRIM [Concomitant]
     Indication: ANTIFUNGAL PROPHYLAXIS
     Dates: start: 20081230
  10. TAZOBAC [Concomitant]
     Indication: ANTIBIOTIC THERAPY
     Dosage: ANTIBIOTIC AGAINST BROVLAC CATHETAR INFECTION
     Dates: start: 20081123, end: 20081128
  11. PLATELET (DIPYRIDAMOLE) [Concomitant]
     Indication: THROMBOCYTOPENIA
     Dates: start: 20081202, end: 20081202
  12. GRANOCYTE [Concomitant]
     Indication: COLONY STIMULATING FACTOR THERAPY
     Dates: start: 20081128, end: 20081205
  13. CYCLOPHOSPHAMIDE [Concomitant]
     Indication: ACUTE LYMPHOCYTIC LEUKAEMIA
     Dates: start: 20081031, end: 20081121
  14. UROMITEXAN [Concomitant]
     Indication: PROPHYLAXIS
     Dosage: FIRST CYCLE TAKEN ON 31-OCT-2008, SECOND CYCLE FROM 19-NOV-2008 TO 21-NOV-2008.
     Dates: start: 20081031, end: 20081121
  15. SODIUM CHLORIDE [Concomitant]
     Indication: PROPHYLAXIS
     Dates: start: 20081031, end: 20081123
  16. GLUCOSE BRAUN [Concomitant]
     Indication: PROPHYLAXIS
     Dates: start: 20081031, end: 20081123
  17. POTASSIUM CHLORIDE [Concomitant]
     Indication: MINERAL SUPPLEMENTATION
     Dates: start: 20081031, end: 20081123
  18. VINCRISTINE SULFATE [Concomitant]
     Indication: ACUTE LYMPHOCYTIC LEUKAEMIA
     Dosage: FIRST DOSE ON 31-OCT-2008, SECOND DOSE ON 23-NOV-2008.
     Dates: start: 20081118, end: 20081123
  19. ASPARAGINASE (AS DRUG) [Concomitant]
     Indication: ACUTE LYMPHOCYTIC LEUKAEMIA
     Dosage: FIRST DOSE ON 23-NOV-2008, SECOND DOSE ON 28-NOV-2008.
     Dates: start: 20081123, end: 20081128
  20. SODIUM BICARBONATE [Concomitant]
     Indication: PH URINE INCREASED
     Dosage: CONCENTRATION OF 8.4%
     Dates: start: 20081118, end: 20081120
  21. LEUCOVORIN [Concomitant]
     Indication: TOXICITY TO VARIOUS AGENTS
     Dates: start: 20081119, end: 20081120
  22. ISOPTO-DEX [Concomitant]
     Indication: PROPHYLAXIS
     Dosage: UNK UNK, PRN
     Dates: start: 20081118, end: 20081223
  23. BENADON [Concomitant]
     Indication: VITAMIN SUPPLEMENTATION
     Dates: start: 20081122, end: 20081125
  24. VOMEX A [Concomitant]
     Indication: PROPHYLAXIS OF NAUSEA AND VOMITING
     Dates: start: 20081118, end: 20081124
  25. SODIUM BICARBONATE (+) SODIUM PHOSPHATE, MONOBASIC [Concomitant]
     Indication: CONSTIPATION PROPHYLAXIS
     Dates: start: 20081122, end: 20081122
  26. DEXTROSE [Concomitant]
     Indication: PROPHYLAXIS AGAINST DEHYDRATION
     Dosage: FIRST INFUSION FROM 17-NOV-2008 TO 18-NOV-2008, SECOND INFUSION FROM 24-NOV-2008 TO 29-NOV-2008.
     Dates: start: 20081117, end: 20081129
  27. KYBERNIN [Concomitant]
     Indication: ANTITHROMBIN III
     Dosage: FIRST COURSE ON 26-NOV-2008, SECOND COURSE ON 28-NOV-2008.
     Dates: start: 20081126, end: 20081128
  28. METICORTEN [Concomitant]
     Indication: ACUTE LYMPHOCYTIC LEUKAEMIA
     Dosage: 10 MG, QD
     Route: 037
     Dates: start: 20081126, end: 20081223
  29. ARA-C [Concomitant]
     Indication: LEUKAEMIA
     Dosage: 30 MG, QD
     Route: 037
     Dates: start: 20081219, end: 20081226
  30. LEUCOVORIN [Concomitant]
     Indication: PROPHYLAXIS
     Route: 042
     Dates: start: 20081221
  31. AMPHO MORONAL [Concomitant]
     Indication: ANTIFUNGAL PROPHYLAXIS
     Dosage: 2 ML, QID
     Route: 048
     Dates: start: 20081201, end: 20081202
  32. UROMITEXAN [Concomitant]
     Indication: PROPHYLAXIS URINARY TRACT INFECTION
     Dosage: UNK UNK, PRN
     Dates: start: 20081119, end: 20081222
  33. BLOOD CELLS, RED [Concomitant]
     Indication: ANAEMIA
     Dosage: 0N 28-DEC-2008 AND ON 5-JAN-2009
     Dates: start: 20081126, end: 20081202
  34. METHOTREXATE [Concomitant]
     Indication: ACUTE LYMPHOCYTIC LEUKAEMIA
     Dosage: 19-NOV2008, 26-NOV-2008, 23-DEC-2008
     Route: 037
     Dates: start: 20081118
  35. GRANISETRON [Concomitant]
     Indication: PROPHYLAXIS OF NAUSEA AND VOMITING
     Dosage: UNK UNK, PRN
     Dates: start: 20081118, end: 20081228
  36. LENOGRASTIM [Concomitant]
     Indication: COLONY STIMULATING FACTOR THERAPY
     Dates: start: 20081128, end: 20081205
  37. PYRIDOXINE HYDROCHLORIDE [Concomitant]
     Indication: VITAMIN SUPPLEMENTATION
     Dates: start: 20081122, end: 20081125
  38. SODIUM BICARBONATE [Concomitant]
     Indication: CONSTIPATION PROPHYLAXIS
     Dates: start: 20081122, end: 20081122
  39. DAUNORUBICIN [Concomitant]
     Indication: ACUTE LYMPHOCYTIC LEUKAEMIA
     Dates: start: 20081223, end: 20081223
  40. FOLIC ACID [Concomitant]
     Indication: TOXICITY TO VARIOUS AGENTS
     Dosage: 12 MG, PRN
     Route: 042
     Dates: start: 20081221, end: 20081225

REACTIONS (3)
  - Chemotherapeutic drug level increased [Recovered/Resolved]
  - Transaminases increased [Recovering/Resolving]
  - Puncture site infection [Recovered/Resolved]
